FAERS Safety Report 4291658-9 (Version None)
Quarter: 2004Q1

REPORT INFORMATION
  Report Type: 
  Country: None (occurrence: None)
  Receive Date: 20040211
  Receipt Date: 20031222
  Transmission Date: 20041129
  Serious: No
  Sender: FDA-Public Use
  Company Number: US-GLAXOSMITHKLINE-A0443923A

PATIENT
  Age: 13 Year
  Sex: Female

DRUGS (2)
  1. IMITREX [Suspect]
     Indication: MIGRAINE
     Route: 058
  2. INDERAL [Concomitant]

REACTIONS (2)
  - HEADACHE [None]
  - SENSATION OF PRESSURE IN EAR [None]
